FAERS Safety Report 10618770 (Version 3)
Quarter: 2014Q4

REPORT INFORMATION
  Report Type: Spontaneous
  Country: US (occurrence: None)
  Receive Date: 20141125
  Receipt Date: 20141223
  Transmission Date: 20150529
  Serious: Yes (Hospitalization, Other)
  Sender: FDA-Public Use
  Company Number: AXC-2014-000714

PATIENT
  Age: 74 Year
  Sex: Female
  Weight: 70.7 kg

DRUGS (6)
  1. VERAPAMIL (VERAPAMIL) UNKNOWN [Concomitant]
  2. CARAFATE [Suspect]
     Active Substance: SUCRALFATE
     Indication: BEHCET^S SYNDROME
     Dosage: 1 G, AC AND HS, UNKNOWN
     Dates: start: 1985, end: 20141202
  3. TYLENOL /00020001/ (PARACETAMOL) [Concomitant]
  4. ANTIVERT [Concomitant]
     Active Substance: MECLIZINE HYDROCHLORIDE
  5. XANAX [Concomitant]
     Active Substance: ALPRAZOLAM
  6. B-12 (CYANOCOBALAMIN) INJECTION [Concomitant]

REACTIONS (17)
  - Visual acuity reduced [None]
  - Headache [None]
  - Urticaria [None]
  - Decreased appetite [None]
  - Metal poisoning [None]
  - Gastrointestinal disorder [None]
  - Flushing [None]
  - Off label use [None]
  - Blood insulin increased [None]
  - Dehydration [None]
  - Mydriasis [None]
  - Loss of consciousness [None]
  - Diarrhoea [None]
  - Weight decreased [None]
  - Wrong technique in drug usage process [None]
  - Gastric disorder [None]
  - Heart rate increased [None]

NARRATIVE: CASE EVENT DATE: 201312
